FAERS Safety Report 8139237-7 (Version None)
Quarter: 2012Q1

REPORT INFORMATION
  Report Type: 
  Country: None (occurrence: None)
  Receive Date: 20120215
  Receipt Date: 20120203
  Transmission Date: 20120608
  Serious: Yes (Other)
  Sender: FDA-Public Use
  Company Number: AU-PURDUE-USA-2012-0082038

PATIENT
  Age: 64 Year
  Sex: Male

DRUGS (12)
  1. TRAMADOL HCL [Suspect]
     Indication: ANALGESIC THERAPY
  2. MORPHINE [Suspect]
     Indication: ANALGESIC THERAPY
  3. MIDAZOLAM [Concomitant]
     Indication: ANAESTHESIA
  4. SINEMET [Concomitant]
     Indication: PARKINSON'S DISEASE
  5. FENTANYL-100 [Suspect]
     Indication: ANAESTHESIA
  6. AMANTADINE HCL [Concomitant]
     Indication: PARKINSON'S DISEASE
     Dosage: 100 MG, BID
  7. PARECOXIB SODIUM [Concomitant]
     Indication: ANALGESIC THERAPY
  8. CLONIDINE [Concomitant]
     Indication: PAIN
  9. DESFLURANE [Suspect]
     Indication: ANAESTHESIA
  10. PROPOFOL [Suspect]
     Indication: ANAESTHESIA
  11. ROCURONIUM BROMIDE [Concomitant]
     Indication: HYPOTONIA
  12. ACETAMINOPHEN [Concomitant]
     Indication: ANALGESIC THERAPY

REACTIONS (2)
  - PARKINSON'S DISEASE [None]
  - CONDITION AGGRAVATED [None]
